FAERS Safety Report 7416297-X (Version None)
Quarter: 2011Q2

REPORT INFORMATION
  Report Type: 
  Country: None (occurrence: None)
  Receive Date: 20110414
  Receipt Date: 20110407
  Transmission Date: 20111010
  Serious: Yes (Hospitalization, Other)
  Sender: FDA-Public Use
  Company Number: US-ELI_LILLY_AND_COMPANY-US201102003908

PATIENT
  Sex: Female
  Weight: 66.9 kg

DRUGS (14)
  1. PRINIVIL [Concomitant]
     Dosage: 5 MG, QD
  2. SPIRIVA [Concomitant]
  3. CALCIUM CITRATE [Concomitant]
  4. ADCIRCA [Suspect]
     Dosage: 40 MG, QD
     Route: 048
     Dates: start: 20110221
  5. WARFARIN [Concomitant]
  6. SYNTHROID [Concomitant]
  7. VITAMIN B1 TAB [Concomitant]
  8. PREVACID [Concomitant]
  9. FOLIC ACID [Concomitant]
  10. ADCIRCA [Suspect]
     Indication: PULMONARY HYPERTENSION
     Dosage: 40 MG, DAILY (1/D)
     Route: 048
     Dates: start: 20091101, end: 20110219
  11. FOSAMAX [Concomitant]
     Dosage: 70 MG, WEEKLY (1/W)
  12. LETAIRIS [Concomitant]
     Dosage: 5 MG, QD
  13. ALBUTEROL [Concomitant]
  14. ADVAIR HFA [Concomitant]
     Dosage: 1 DF, BID
     Route: 055

REACTIONS (5)
  - HYPOTENSION [None]
  - PLEURAL EFFUSION [None]
  - MYOCARDIAL INFARCTION [None]
  - CARDIAC FAILURE CONGESTIVE [None]
  - OEDEMA PERIPHERAL [None]
